FAERS Safety Report 9529570 (Version 2)
Quarter: 2013Q4

REPORT INFORMATION
  Report Type: Spontaneous
  Country: KR (occurrence: KR)
  Receive Date: 20130917
  Receipt Date: 20131011
  Transmission Date: 20140711
  Serious: Yes (Other)
  Sender: FDA-Public Use
  Company Number: KR-SPECTRUM PHARMACEUTICALS, INC.-13-F-KR-00260

PATIENT
  Sex: Female

DRUGS (2)
  1. FOLOTYN [Suspect]
     Indication: PERIPHERAL T-CELL LYMPHOMA UNSPECIFIED
     Dosage: 20 MG, WEEKLY (6 WEEKLY INJECTION PLUS 1 WEEK REST EQUALS 1 CYCLE)
     Route: 042
     Dates: start: 20130816, end: 20130831
  2. FOLOTYN [Suspect]
     Indication: ANGIOCENTRIC LYMPHOMA

REACTIONS (1)
  - Malignant neoplasm progression [Not Recovered/Not Resolved]
